FAERS Safety Report 25178827 (Version 1)
Quarter: 2025Q2

REPORT INFORMATION
  Report Type: Spontaneous
  Country: BE (occurrence: BE)
  Receive Date: 20250409
  Receipt Date: 20250409
  Transmission Date: 20250716
  Serious: Yes (Hospitalization)
  Sender: AMGEN
  Company Number: None

PATIENT
  Age: 52 Year
  Sex: Female

DRUGS (1)
  1. REPATHA [Suspect]
     Active Substance: EVOLOCUMAB
     Indication: Hypercholesterolaemia
     Dosage: 1 DOSAGE FORM, QMO
     Route: 058
     Dates: start: 20250310, end: 20250310

REACTIONS (21)
  - Hot flush [Recovering/Resolving]
  - Dry skin [Recovering/Resolving]
  - Skin wrinkling [Recovering/Resolving]
  - Feeling hot [Recovering/Resolving]
  - Heart rate increased [Recovering/Resolving]
  - Body temperature increased [Recovering/Resolving]
  - Night sweats [Recovering/Resolving]
  - Pharyngeal swelling [Recovering/Resolving]
  - Malaise [Recovering/Resolving]
  - Dry eye [Recovering/Resolving]
  - Chest pain [Recovering/Resolving]
  - Visual impairment [Recovering/Resolving]
  - Cough [Recovering/Resolving]
  - Dizziness [Recovering/Resolving]
  - Fatigue [Recovering/Resolving]
  - Erythema [Recovering/Resolving]
  - Diarrhoea [Recovering/Resolving]
  - Headache [Recovering/Resolving]
  - Drug hypersensitivity [Recovering/Resolving]
  - Back pain [Recovering/Resolving]
  - Nausea [Recovering/Resolving]

NARRATIVE: CASE EVENT DATE: 20250310
